FAERS Safety Report 8956489 (Version 2)
Quarter: 2013Q1

REPORT INFORMATION
  Report Type: Spontaneous
  Country: US (occurrence: US)
  Receive Date: 20121210
  Receipt Date: 20130118
  Transmission Date: 20140127
  Serious: No
  Sender: FDA-Public Use
  Company Number: US-PFIZER INC-2012310072

PATIENT
  Age: 68 Year
  Sex: Female
  Weight: 76.19 kg

DRUGS (2)
  1. EFFEXOR [Suspect]
     Indication: MUSCULOSKELETAL DISCOMFORT
     Dosage: 75 MG, 1X/DAY
     Route: 048
     Dates: end: 201208
  2. EFFEXOR [Suspect]
     Dosage: 1 TABLET, EVERY ALTERNATE DAY
     Route: 048
     Dates: start: 201208, end: 201208

REACTIONS (5)
  - Hypertension [Not Recovered/Not Resolved]
  - Hypothyroidism [Not Recovered/Not Resolved]
  - Incorrect dose administered [Unknown]
  - Agitation [Recovering/Resolving]
  - Irritability [Recovering/Resolving]
